FAERS Safety Report 17337022 (Version 2)
Quarter: 2020Q1

REPORT INFORMATION
  Report Type: Spontaneous
  Country: US (occurrence: US)
  Receive Date: 20200128
  Receipt Date: 20200330
  Transmission Date: 20200409
  Serious: No
  Sender: FDA-Public Use
  Company Number: US-PFIZER INC-2020014919

PATIENT
  Age: 70 Year
  Sex: Female
  Weight: 70 kg

DRUGS (3)
  1. XELJANZ XR [Suspect]
     Active Substance: TOFACITINIB CITRATE
     Indication: SPONDYLOARTHROPATHY
     Dosage: 11 MG, DAILY
     Dates: start: 20200129
  2. ALLEGRA [Concomitant]
     Active Substance: FEXOFENADINE HYDROCHLORIDE
     Indication: PRURITUS
     Dosage: UNK
  3. ALLEGRA [Concomitant]
     Active Substance: FEXOFENADINE HYDROCHLORIDE
     Indication: SNEEZING

REACTIONS (8)
  - Feeling abnormal [Unknown]
  - Sneezing [Unknown]
  - Product use in unapproved indication [Unknown]
  - Malaise [Unknown]
  - Skin exfoliation [Unknown]
  - Pain [Unknown]
  - Off label use [Unknown]
  - Condition aggravated [Unknown]
